FAERS Safety Report 17805184 (Version 2)
Quarter: 2020Q2

REPORT INFORMATION
  Report Type: Spontaneous
  Country: US (occurrence: US)
  Receive Date: 20200519
  Receipt Date: 20200618
  Transmission Date: 20200714
  Serious: Yes (Death, Life-Threatening, Hospitalization, Disabling, Other)
  Sender: FDA-Public Use
  Company Number: US-GILEAD-2020-0466961

PATIENT
  Age: 48 Year
  Sex: Male
  Weight: 111 kg

DRUGS (22)
  1. ATROPINE. [Concomitant]
     Active Substance: ATROPINE
  2. LORAZEPAM. [Concomitant]
     Active Substance: LORAZEPAM
  3. ATORVASTATIN [Concomitant]
     Active Substance: ATORVASTATIN
  4. MIDAZOLAM. [Concomitant]
     Active Substance: MIDAZOLAM
  5. ROCURONIUM [Concomitant]
     Active Substance: ROCURONIUM BROMIDE
  6. HYDROCORTISONE. [Concomitant]
     Active Substance: HYDROCORTISONE
     Dosage: 100 MG
     Route: 042
  7. PROPOFOL. [Concomitant]
     Active Substance: PROPOFOL
  8. FLUMAZENIL. [Concomitant]
     Active Substance: FLUMAZENIL
  9. REMDESIVIR. [Suspect]
     Active Substance: REMDESIVIR
     Indication: COVID-19
     Dosage: 200 MG, QD
     Route: 042
     Dates: start: 20200509, end: 20200509
  10. METFORMIN [Concomitant]
     Active Substance: METFORMIN HYDROCHLORIDE
  11. PANTOPRAZOLE [Concomitant]
     Active Substance: PANTOPRAZOLE
  12. VASOPRESSIN. [Concomitant]
     Active Substance: VASOPRESSIN
  13. EPINEPHRINE. [Concomitant]
     Active Substance: EPINEPHRINE
  14. CEFTAZIDIME. [Concomitant]
     Active Substance: CEFTAZIDIME
  15. MORPHINE [Concomitant]
     Active Substance: MORPHINE
  16. NALOXONE [Concomitant]
     Active Substance: NALOXONE
  17. DEXTROSE. [Concomitant]
     Active Substance: DEXTROSE
  18. CHLORHEXIDINE [Concomitant]
     Active Substance: CHLORHEXIDINE
  19. NEOSTIGMINE. [Concomitant]
     Active Substance: NEOSTIGMINE METHYLSULFATE
  20. NOREPINEPHRINE. [Concomitant]
     Active Substance: NOREPINEPHRINE
  21. VANCOMYCIN [Concomitant]
     Active Substance: VANCOMYCIN
  22. FENTANYL TRANSDERMAL SYSTEM [Concomitant]
     Active Substance: FENTANYL

REACTIONS (2)
  - Hepatic function abnormal [Fatal]
  - Blood creatinine increased [Fatal]

NARRATIVE: CASE EVENT DATE: 20200509
